FAERS Safety Report 20993840 (Version 4)
Quarter: 2023Q2

REPORT INFORMATION
  Report Type: Spontaneous
  Country: US (occurrence: US)
  Receive Date: 20220622
  Receipt Date: 20230628
  Transmission Date: 20230721
  Serious: No
  Sender: FDA-Public Use
  Company Number: US-CTI BIOPHARMA-2022US02798

PATIENT

DRUGS (7)
  1. VONJO [Suspect]
     Active Substance: PACRITINIB
     Indication: Myeloproliferative neoplasm
     Dosage: 200 MILLIGRAM, BID
     Route: 048
     Dates: start: 20220420
  2. VONJO [Suspect]
     Active Substance: PACRITINIB
     Dosage: 200 MG, BID
     Route: 048
     Dates: start: 20220420
  3. METFORMIN [Concomitant]
     Active Substance: METFORMIN HYDROCHLORIDE
  4. ASPIRIN [Concomitant]
     Active Substance: ASPIRIN
  5. DOXAZOSIN [Concomitant]
     Active Substance: DOXAZOSIN MESYLATE
  6. OMEPRAZOLE [Concomitant]
     Active Substance: OMEPRAZOLE
  7. PRAVASTATIN [Concomitant]
     Active Substance: PRAVASTATIN

REACTIONS (14)
  - Feeling abnormal [Unknown]
  - Accidental underdose [Unknown]
  - Platelet transfusion [Unknown]
  - Fatigue [Unknown]
  - Toothache [Unknown]
  - Swelling face [Unknown]
  - Tooth abscess [Unknown]
  - Haemoglobin increased [Unknown]
  - Transfusion [Unknown]
  - Asthenia [Unknown]
  - Irritability [Unknown]
  - Off label use [Unknown]
  - Platelet count decreased [Unknown]
  - Haemoglobin decreased [Unknown]

NARRATIVE: CASE EVENT DATE: 20220426
